FAERS Safety Report 8503769-X (Version None)
Quarter: 2012Q3

REPORT INFORMATION
  Report Type: 
  Country: None (occurrence: None)
  Receive Date: 20120711
  Receipt Date: 20110513
  Transmission Date: 20120928
  Serious: Yes (Hospitalization, Other)
  Sender: FDA-Public Use
  Company Number: AU-009507513-1105USA02355

PATIENT

DRUGS (2)
  1. VENTOLIN [Concomitant]
     Indication: ASTHMA
     Dosage: 100 A?G, PRN
     Route: 055
     Dates: start: 20050501
  2. SINGULAIR [Suspect]
     Indication: ASTHMA
     Dosage: 5 MG, QD
     Route: 048
     Dates: start: 20100517, end: 20110325

REACTIONS (8)
  - DISTURBANCE IN ATTENTION [None]
  - IRRITABILITY [None]
  - AGGRESSION [None]
  - FEELING OF DESPAIR [None]
  - APATHY [None]
  - CRYING [None]
  - DECREASED INTEREST [None]
  - MOOD SWINGS [None]
